FAERS Safety Report 20679484 (Version 1)
Quarter: 2022Q2

REPORT INFORMATION
  Report Type: Spontaneous
  Country: US (occurrence: US)
  Receive Date: 20220406
  Receipt Date: 20220406
  Transmission Date: 20220720
  Serious: No
  Sender: FDA-Public Use
  Company Number: US-ALLERGAN-2209814US

PATIENT

DRUGS (6)
  1. QULIPTA [Suspect]
     Active Substance: ATOGEPANT
     Indication: Migraine
     Dosage: UNK
  2. BOTOX [Concomitant]
     Active Substance: ONABOTULINUMTOXINA
  3. TOPAMAX [Concomitant]
     Active Substance: TOPIRAMATE
     Dosage: 200MG PER DAY
  4. NURTEC ODT [Concomitant]
     Active Substance: RIMEGEPANT SULFATE
  5. UBRELVY [Concomitant]
     Active Substance: UBROGEPANT
  6. REYVOW [Concomitant]
     Active Substance: LASMIDITAN

REACTIONS (1)
  - Drug ineffective [Unknown]
